FAERS Safety Report 14297515 (Version 7)
Quarter: 2019Q2

REPORT INFORMATION
  Report Type: Spontaneous
  Country: US (occurrence: US)
  Receive Date: 20171218
  Receipt Date: 20190612
  Transmission Date: 20190711
  Serious: Yes (Hospitalization, Other)
  Sender: FDA-Public Use
  Company Number: US-PFIZER INC-2017537117

PATIENT
  Age: 62 Year
  Sex: Female
  Weight: 98.43 kg

DRUGS (6)
  1. REVATIO [Suspect]
     Active Substance: SILDENAFIL CITRATE
     Dosage: 20 MG, 3X/DAY
     Route: 048
  2. ATIVAN [Concomitant]
     Active Substance: LORAZEPAM
     Indication: ANXIETY
     Dosage: UNK, AS NEEDED (1/2 TO 1 EVERY 8 HOURS)
  3. NORVASC [Concomitant]
     Active Substance: AMLODIPINE BESYLATE
     Indication: BLOOD PRESSURE ABNORMAL
     Dosage: 5 MG, DAILY
  4. REVATIO [Suspect]
     Active Substance: SILDENAFIL CITRATE
     Indication: PULMONARY FIBROSIS
     Dosage: 20 MG, 3X/DAY
     Route: 048
     Dates: start: 2016
  5. LISINOPRIL. [Concomitant]
     Active Substance: LISINOPRIL
     Indication: BLOOD PRESSURE ABNORMAL
     Dosage: 10 MG, DAILY
     Dates: start: 2010
  6. REVATIO [Suspect]
     Active Substance: SILDENAFIL CITRATE
     Indication: PULMONARY HYPERTENSION
     Dosage: 20 MG, THREE TIMES A DAY
     Dates: start: 2015

REACTIONS (12)
  - Hypoxia [Unknown]
  - Expired product administered [Unknown]
  - Dyspnoea [Not Recovered/Not Resolved]
  - Fatigue [Recovered/Resolved]
  - Product dose omission [Unknown]
  - Pneumonia [Unknown]
  - Nasal congestion [Unknown]
  - PO2 decreased [Recovering/Resolving]
  - Cough [Recovered/Resolved]
  - Malaise [Recovered/Resolved]
  - Influenza [Recovered/Resolved]
  - Lung neoplasm malignant [Recovering/Resolving]

NARRATIVE: CASE EVENT DATE: 201711
